FAERS Safety Report 6443013-0 (Version None)
Quarter: 2009Q4

REPORT INFORMATION
  Report Type: 
  Country: None (occurrence: None)
  Receive Date: 20091117
  Receipt Date: 20091111
  Transmission Date: 20100525
  Serious: Yes (Other)
  Sender: FDA-Public Use
  Company Number: PHHY2009SE49291

PATIENT
  Sex: Female

DRUGS (4)
  1. FEMAR [Suspect]
     Indication: BREAST CANCER
  2. IKTORIVIL [Interacting]
     Indication: EPILEPSY
  3. KEPPRA [Interacting]
     Indication: EPILEPSY
  4. LAMOTRIGINE [Interacting]
     Indication: EPILEPSY

REACTIONS (3)
  - CONCOMITANT DISEASE AGGRAVATED [None]
  - DRUG INTERACTION [None]
  - EPILEPSY [None]
